FAERS Safety Report 4754523-6 (Version None)
Quarter: 2005Q3

REPORT INFORMATION
  Report Type: 
  Country: None (occurrence: None)
  Receive Date: 20050829
  Receipt Date: 20050816
  Transmission Date: 20060218
  Serious: Yes (Hospitalization)
  Sender: FDA-Public Use
  Company Number: 2005PK01542

PATIENT
  Age: 28256 Day
  Sex: Female

DRUGS (17)
  1. METOPROLOL SUCCINATE [Suspect]
     Indication: HYPERTENSION
     Route: 048
  2. DIGITOXIN TAB [Suspect]
     Indication: ATRIAL FIBRILLATION
  3. ROSUVASTATIN CODE NOT BROKEN [Suspect]
     Indication: RENAL FAILURE CHRONIC
     Route: 048
     Dates: start: 20040128
  4. ASPIRIN [Concomitant]
     Indication: THROMBOSIS PROPHYLAXIS
     Route: 048
  5. FUSID [Concomitant]
     Indication: POLYURIA
     Route: 048
     Dates: start: 20031027
  6. NITRENDIPIN [Concomitant]
     Indication: HYPERTENSION
     Route: 048
     Dates: start: 20031015
  7. NEPRESOL [Concomitant]
     Indication: HYPERTENSION
     Route: 048
  8. CALCIUM DURA [Concomitant]
     Indication: HYPOCALCAEMIA
     Route: 048
  9. ALLOPURINOL [Concomitant]
     Indication: HYPERURICAEMIA
     Route: 048
  10. LIMPTAR [Concomitant]
     Indication: MUSCLE SPASMS
     Route: 048
  11. JARSIN [Concomitant]
     Indication: DEPRESSION
     Route: 048
     Dates: start: 20030311
  12. CARENAL [Concomitant]
     Indication: VITAMIN SUPPLEMENTATION
     Route: 048
     Dates: start: 20031106
  13. ARANESP [Concomitant]
     Indication: NEPHROGENIC ANAEMIA
     Route: 042
     Dates: start: 20030716
  14. FERRLECIT [Concomitant]
     Indication: NEPHROGENIC ANAEMIA
     Route: 042
  15. FERRLECIT [Concomitant]
     Indication: IRON DEFICIENCY
     Route: 042
  16. NEXIUM [Concomitant]
     Indication: GASTRITIS
  17. NEXIUM [Concomitant]
     Indication: GASTRIC ULCER

REACTIONS (5)
  - ATRIAL FIBRILLATION [None]
  - BLOOD PRESSURE INCREASED [None]
  - HEART RATE DECREASED [None]
  - REFUSAL OF TREATMENT BY PATIENT [None]
  - SYNCOPE [None]
